FAERS Safety Report 7274341-7 (Version None)
Quarter: 2011Q1

REPORT INFORMATION
  Report Type: 
  Country: None (occurrence: None)
  Receive Date: 20110131
  Receipt Date: 20110131
  Transmission Date: 20110831
  Serious: No
  Sender: FDA-Public Use
  Company Number: None

PATIENT
  Sex: Male
  Weight: 103.4201 kg

DRUGS (1)
  1. LOSARTAN POTASSIUM [Suspect]
     Indication: HYPERTENSION
     Dosage: 1 TAB DAILY PO
     Route: 048
     Dates: start: 20110107, end: 20110126

REACTIONS (11)
  - FATIGUE [None]
  - DYSPNOEA [None]
  - LETHARGY [None]
  - ARTHRALGIA [None]
  - OEDEMA PERIPHERAL [None]
  - SWELLING FACE [None]
  - DYSURIA [None]
  - HEART RATE DECREASED [None]
  - MYALGIA [None]
  - HEADACHE [None]
  - DIARRHOEA [None]
